FAERS Safety Report 16572349 (Version 8)
Quarter: 2022Q1

REPORT INFORMATION
  Report Type: Spontaneous
  Country: JP (occurrence: JP)
  Receive Date: 20190715
  Receipt Date: 20220328
  Transmission Date: 20220423
  Serious: Yes (Death, Hospitalization, Other)
  Sender: FDA-Public Use
  Company Number: PHJP2019JP008703

PATIENT
  Age: 4 Year
  Sex: Female

DRUGS (3)
  1. ILARIS [Suspect]
     Active Substance: CANAKINUMAB
     Indication: Still^s disease
     Dosage: 75 MG
     Route: 058
     Dates: start: 20190215, end: 20190808
  2. CYCLOSERINE [Concomitant]
     Active Substance: CYCLOSERINE
     Indication: Immunosuppression
     Dosage: 90 MG
     Route: 048
     Dates: start: 20181022
  3. NAFAMOSTAT MESYLATE [Concomitant]
     Active Substance: NAFAMOSTAT MESYLATE
     Indication: Product used for unknown indication
     Dosage: UNK
     Route: 065

REACTIONS (33)
  - Haemophagocytic lymphohistiocytosis [Fatal]
  - Full blood count decreased [Fatal]
  - Hepatic function abnormal [Fatal]
  - Malaise [Fatal]
  - Pyrexia [Fatal]
  - Pyrexia [Fatal]
  - Pyrexia [Fatal]
  - Hepatic rupture [Fatal]
  - Epstein-Barr virus associated lymphoproliferative disorder [Fatal]
  - Abdominal pain [Fatal]
  - Jaundice [Fatal]
  - Liver disorder [Fatal]
  - Cardiac arrest [Recovered/Resolved]
  - Cardiac arrest [Fatal]
  - Respiratory arrest [Recovered/Resolved]
  - Respiratory arrest [Fatal]
  - Respiratory disorder [Fatal]
  - Pleural effusion [Fatal]
  - Oropharyngeal discomfort [Recovered/Resolved]
  - Still^s disease [Recovered/Resolved]
  - Still^s disease [Unknown]
  - Condition aggravated [Recovered/Resolved]
  - Condition aggravated [Unknown]
  - Hepatomegaly [Unknown]
  - Splenomegaly [Unknown]
  - Hepatic neoplasm [Unknown]
  - Sepsis [Unknown]
  - Haemorrhage [Unknown]
  - Gastrointestinal haemorrhage [Unknown]
  - Ascites [Unknown]
  - Ileus paralytic [Unknown]
  - Disseminated intravascular coagulation [Unknown]
  - Infection [Unknown]

NARRATIVE: CASE EVENT DATE: 20190630
